FAERS Safety Report 5801702-2 (Version None)
Quarter: 2008Q2

REPORT INFORMATION
  Report Type: 
  Country: None (occurrence: None)
  Receive Date: 20080626
  Receipt Date: 20071227
  Transmission Date: 20081010
  Serious: Yes (Other)
  Sender: FDA-Public Use
  Company Number: 538728

PATIENT
  Age: 52 Year
  Sex: Female
  Weight: 65.8 kg

DRUGS (11)
  1. XELODA [Suspect]
     Indication: BREAST CANCER
     Dosage: 2500 MG DAILY 2 PER DAY ORAL
     Route: 048
     Dates: start: 20070521
  2. TYKERB [Suspect]
     Indication: BREAST CANCER
     Dosage: 1250 MG DAILY ORAL
     Route: 048
     Dates: start: 20070521
  3. IBUPROFEN [Concomitant]
  4. ENZYMES (ENZYMES) [Concomitant]
  5. IRON SALTS (IRON NOS) [Concomitant]
  6. GLUCOSAMINE SULFATE/CHONDROITIN (CHONDROITIN SULFATE/GLUCOSAMINE) [Concomitant]
  7. CALCIUM/VITAMIN D (CALCIUM/VITAMIN D NOS) [Concomitant]
  8. ACIDOPHILUS (LACTOBACILLUS ACIDOPHILUS) [Concomitant]
  9. OMEGA-3 MARINE TRIGLYCERIDES (DOCONEXENT/ICOSAPENT) [Concomitant]
  10. VITAMIN B6 (PYRIDOXINE HYDROCHLORIDIE) [Concomitant]
  11. COUMADIN [Concomitant]

REACTIONS (6)
  - ABDOMINAL PAIN [None]
  - BILIRUBIN CONJUGATED INCREASED [None]
  - BLOOD BILIRUBIN INCREASED [None]
  - DYSPEPSIA [None]
  - JAUNDICE [None]
  - NAUSEA [None]
